FAERS Safety Report 16472179 (Version 1)
Quarter: 2019Q2

REPORT INFORMATION
  Report Type: Report from Study
  Country: CL (occurrence: CL)
  Receive Date: 20190625
  Receipt Date: 20190625
  Transmission Date: 20190711
  Serious: Yes (Other)
  Sender: FDA-Public Use
  Company Number: CL-BEH-2019102862

PATIENT
  Age: 50 Year
  Sex: Female

DRUGS (1)
  1. BERINERT [Suspect]
     Active Substance: HUMAN C1-ESTERASE INHIBITOR
     Indication: HEREDITARY ANGIOEDEMA
     Dosage: UNK UNK, PRN
     Route: 042
     Dates: start: 20181122

REACTIONS (9)
  - Road traffic accident [Unknown]
  - Abdominal pain [Unknown]
  - Unevaluable event [Unknown]
  - Colitis [Unknown]
  - Joint injury [Unknown]
  - Face oedema [Unknown]
  - Angioedema [Unknown]
  - Unevaluable event [Unknown]
  - Vomiting [Unknown]

NARRATIVE: CASE EVENT DATE: 20190328
